FAERS Safety Report 9286528 (Version 1)
Quarter: 2013Q2

REPORT INFORMATION
  Report Type: Spontaneous
  Country: BR (occurrence: None)
  Receive Date: 20130508
  Receipt Date: 20130508
  Transmission Date: 20140414
  Serious: Yes (Hospitalization, Other)
  Sender: FDA-Public Use
  Company Number: DAV-AE-MTX-13-31

PATIENT
  Age: 17 Year
  Sex: Male

DRUGS (8)
  1. METHOTREXATE [Suspect]
     Indication: BURKITT^S LYMPHOMA
  2. CYCLOPHOSPHAMIDE [Concomitant]
  3. VINCRISTINE [Concomitant]
  4. IFOSFAMIDE [Concomitant]
  5. CARBOPLATIN [Concomitant]
  6. ETOPOSIDE [Concomitant]
  7. DOXORUBICIN [Concomitant]
  8. PREDNISONE [Concomitant]

REACTIONS (6)
  - Pulmonary mycosis [None]
  - Febrile neutropenia [None]
  - General physical health deterioration [None]
  - Respiratory failure [None]
  - Pleural effusion [None]
  - Platelet count decreased [None]
